FAERS Safety Report 6194896-3 (Version None)
Quarter: 2009Q2

REPORT INFORMATION
  Report Type: 
  Country: None (occurrence: None)
  Receive Date: 20090519
  Receipt Date: 20090126
  Transmission Date: 20091009
  Serious: No
  Sender: FDA-Public Use
  Company Number: US-TYCO HEALTHCARE/MALLINCKRODT-T200900115

PATIENT
  Age: 56 Year
  Sex: Female

DRUGS (1)
  1. METHADONE [Suspect]
     Indication: PAIN
     Dosage: 5 MG, TID
     Route: 048
     Dates: start: 20030101, end: 20080101

REACTIONS (6)
  - BURNING SENSATION [None]
  - COGNITIVE DISORDER [None]
  - DRUG INEFFECTIVE [None]
  - DYSPEPSIA [None]
  - FEELING ABNORMAL [None]
  - VISION BLURRED [None]
